FAERS Safety Report 5932658-X (Version None)
Quarter: 2008Q4

REPORT INFORMATION
  Report Type: 
  Country: None (occurrence: None)
  Receive Date: 20081023
  Receipt Date: 20060301
  Transmission Date: 20090506
  Serious: Yes (Hospitalization, Other)
  Sender: FDA-Public Use
  Company Number: 2006AL001965

PATIENT
  Age: 88 Year
  Sex: Female

DRUGS (8)
  1. CITALOPRAM HYDROBROMIDE [Suspect]
     Indication: DEPRESSION
     Dosage: 10 MG;QD;PO
     Route: 048
     Dates: start: 20051219, end: 20060126
  2. METOCLOPRAMIDE [Suspect]
     Dosage: 10 MG;TID;PO
     Route: 048
  3. BENDROFLUMETHIAZIDE [Concomitant]
  4. PLANTAGO OVATA [Concomitant]
  5. HYPROMELLOSE [Concomitant]
  6. CYANOCOBALAMIN [Concomitant]
  7. ALVERINE [Concomitant]
  8. ALBUTEROL SULFATE [Concomitant]

REACTIONS (2)
  - HYPOKALAEMIA [None]
  - HYPONATRAEMIA [None]
